FAERS Safety Report 5417004-2 (Version None)
Quarter: 2007Q3

REPORT INFORMATION
  Report Type: 
  Country: None (occurrence: None)
  Receive Date: 20070816
  Receipt Date: 20070809
  Transmission Date: 20080115
  Serious: Yes (Hospitalization)
  Sender: FDA-Public Use
  Company Number: BE-BAYER-200714624GDS

PATIENT
  Age: 74 Year
  Sex: Male

DRUGS (8)
  1. SORAFENIB [Suspect]
     Indication: PROSTATE CANCER
     Route: 048
     Dates: start: 20070714, end: 20070730
  2. TAXOTERE [Suspect]
     Indication: PROSTATE CANCER
     Route: 042
     Dates: start: 20070712, end: 20070712
  3. TAXOTERE [Suspect]
     Route: 042
     Dates: start: 20070802, end: 20070802
  4. PREDNISONE TAB [Suspect]
     Indication: PROSTATE CANCER
     Route: 048
     Dates: start: 20070712
  5. TILDIEM [Concomitant]
     Indication: HYPERTENSION
     Route: 048
     Dates: start: 19980101, end: 20070805
  6. ARICEPT [Concomitant]
     Indication: MEMORY IMPAIRMENT
     Route: 048
     Dates: start: 20070802
  7. METFORMAX [Concomitant]
     Indication: DIABETES MELLITUS
     Route: 048
     Dates: start: 20040101
  8. SIMVASTATIN [Concomitant]
     Indication: HYPERCHOLESTEROLAEMIA
     Route: 048
     Dates: start: 20020101

REACTIONS (1)
  - ANGINA PECTORIS [None]
